FAERS Safety Report 7702603-5 (Version None)
Quarter: 2011Q3

REPORT INFORMATION
  Report Type: 
  Country: None (occurrence: None)
  Receive Date: 20110823
  Receipt Date: 20110812
  Transmission Date: 20111222
  Serious: Yes (Other)
  Sender: FDA-Public Use
  Company Number: US-BIOGENIDEC-2011BI015107

PATIENT
  Age: 20 Year
  Sex: Female

DRUGS (2)
  1. AVONEX [Suspect]
     Indication: MULTIPLE SCLEROSIS
     Route: 030
     Dates: start: 20081005
  2. AVONEX [Suspect]
     Route: 030
     Dates: start: 20110701

REACTIONS (1)
  - ABORTION SPONTANEOUS [None]
